FAERS Safety Report 5054081-5 (Version None)
Quarter: 2006Q2

REPORT INFORMATION
  Report Type: 
  Country: None (occurrence: None)
  Receive Date: 20060616
  Receipt Date: 20060105
  Transmission Date: 20061013
  Serious: Yes (Hospitalization)
  Sender: FDA-Public Use
  Company Number: 200514024US

PATIENT
  Age: 66 Year
  Sex: Female
  Weight: 60.9 kg

DRUGS (8)
  1. LANTUS [Suspect]
     Indication: DIABETES MELLITUS NON-INSULIN-DEPENDENT
     Dosage: 6 U QD INJ
     Dates: start: 20050102
  2. LANTUS [Suspect]
     Indication: DIABETES MELLITUS NON-INSULIN-DEPENDENT
     Dosage: 5 U HS INJ
     Dates: start: 20050102
  3. METFORMIN HYDROCHLORIDE [Concomitant]
  4. GLIMEPIRIDE (AMARYL) [Concomitant]
  5. ACCUPRIL [Concomitant]
  6. LATANOPROST (XALATAN) [Concomitant]
  7. CHEMOTHERAPY [Concomitant]
  8. ASPIRIN [Concomitant]

REACTIONS (6)
  - ASTHENIA [None]
  - BLOOD GLUCOSE INCREASED [None]
  - HYPERHIDROSIS [None]
  - HYPOGLYCAEMIC COMA [None]
  - LOSS OF CONSCIOUSNESS [None]
  - PYREXIA [None]
